FAERS Safety Report 15955176 (Version 3)
Quarter: 2020Q1

REPORT INFORMATION
  Report Type: Spontaneous
  Country: US (occurrence: US)
  Receive Date: 20190213
  Receipt Date: 20200131
  Transmission Date: 20200409
  Serious: Yes (Death)
  Sender: FDA-Public Use
  Company Number: US-PFIZER INC-2019066782

PATIENT
  Age: 81 Year
  Sex: Female

DRUGS (3)
  1. IBRANCE [Suspect]
     Active Substance: PALBOCICLIB
     Indication: BREAST CANCER FEMALE
     Dosage: 100 MG, CYCLIC, DAILY FOR 21 DAYS AND OFF FOR 7 DAYS EVERY 28 DAYS
     Route: 048
  2. IBRANCE [Suspect]
     Active Substance: PALBOCICLIB
     Indication: ANAEMIA
  3. IBRANCE [Suspect]
     Active Substance: PALBOCICLIB
     Indication: BONE CANCER

REACTIONS (2)
  - Pruritus [Unknown]
  - Death [Fatal]

NARRATIVE: CASE EVENT DATE: 20200121
